FAERS Safety Report 21406282 (Version 1)
Quarter: 2022Q4

REPORT INFORMATION
  Report Type: Spontaneous
  Country: US (occurrence: US)
  Receive Date: 20221004
  Receipt Date: 20221004
  Transmission Date: 20230112
  Serious: No
  Sender: FDA-Public Use
  Company Number: US-BION-010046

PATIENT
  Age: 60 Year
  Sex: Female

DRUGS (1)
  1. IMODIUM A-D [Suspect]
     Active Substance: LOPERAMIDE HYDROCHLORIDE
     Indication: Diarrhoea
     Dosage: 2 SOFTGELS 1 TIME
     Dates: start: 20210911, end: 20210911

REACTIONS (8)
  - Constipation [Not Recovered/Not Resolved]
  - Abdominal distension [Not Recovered/Not Resolved]
  - Hiccups [Not Recovered/Not Resolved]
  - Eructation [Not Recovered/Not Resolved]
  - Taste disorder [Not Recovered/Not Resolved]
  - Rectal tenesmus [Not Recovered/Not Resolved]
  - Abdominal pain upper [Not Recovered/Not Resolved]
  - Nausea [Not Recovered/Not Resolved]

NARRATIVE: CASE EVENT DATE: 20210911
